FAERS Safety Report 6544587-1 (Version None)
Quarter: 2010Q1

REPORT INFORMATION
  Report Type: 
  Country: None (occurrence: None)
  Receive Date: 20100115
  Receipt Date: 20100108
  Transmission Date: 20100710
  Serious: Yes (Death, Other)
  Sender: FDA-Public Use
  Company Number: 2009US001788

PATIENT
  Age: 54 Year
  Sex: Male

DRUGS (13)
  1. AMBISOME [Suspect]
     Indication: FUNGAL INFECTION
     Dosage: 150 MG, UID/QD, IV NOS
     Route: 042
     Dates: start: 20090330, end: 20090401
  2. SPRYCEL [Suspect]
     Indication: CHRONIC MYELOID LEUKAEMIA
     Dosage: 70 MG, BID, ORAL
     Route: 048
     Dates: start: 20090330, end: 20090401
  3. VINDESINE SULFATE (VINDESINE SULFATE) [Concomitant]
  4. PREDNISOLONE [Concomitant]
  5. OMEPRAZOLE [Concomitant]
  6. OMEPRAZOLE [Concomitant]
  7. PREDNISOLONE [Concomitant]
  8. PREDONINE (PREDNISOLONE ACETATE) [Concomitant]
  9. FUNGUARD (MICAFUNGIN) [Concomitant]
  10. MAXIPIME [Concomitant]
  11. TRANSAMIN (TRANEXAMIC ACID) [Concomitant]
  12. DOPAMINE HYDROCHLORIDE [Concomitant]
  13. DOBUPUM (DOBUTAMINE HYDROCHLORIDE) [Concomitant]

REACTIONS (15)
  - ACTIVATED PARTIAL THROMBOPLASTIN TIME PROLONGED [None]
  - ACUTE PULMONARY OEDEMA [None]
  - BLOOD CREATINE PHOSPHOKINASE INCREASED [None]
  - COAGULOPATHY [None]
  - CONVULSION [None]
  - DECREASED APPETITE [None]
  - GAIT DISTURBANCE [None]
  - GASTROINTESTINAL HAEMORRHAGE [None]
  - HAEMOGLOBIN DECREASED [None]
  - MULTI-ORGAN FAILURE [None]
  - MUSCULAR WEAKNESS [None]
  - PLATELET COUNT DECREASED [None]
  - PULMONARY HAEMORRHAGE [None]
  - RENAL FAILURE [None]
  - SHOCK HAEMORRHAGIC [None]
